FAERS Safety Report 20737898 (Version 1)
Quarter: 2022Q2

REPORT INFORMATION
  Report Type: Spontaneous
  Country: US (occurrence: US)
  Receive Date: 20220422
  Receipt Date: 20220422
  Transmission Date: 20220721
  Serious: Yes (Hospitalization, Other)
  Sender: FDA-Public Use
  Company Number: US-QUAGEN-2022QUALIT00023

PATIENT
  Age: 73 Year
  Sex: Female

DRUGS (2)
  1. TRIAMCINOLONE ACETONIDE [Suspect]
     Active Substance: TRIAMCINOLONE ACETONIDE
     Indication: Infective keratitis
     Route: 031
  2. HYDROXYCHLOROQUINE [Suspect]
     Active Substance: HYDROXYCHLOROQUINE
     Indication: Rheumatoid arthritis
     Route: 065

REACTIONS (3)
  - Infectious crystalline keratopathy [Recovering/Resolving]
  - Microsporidia infection [Recovered/Resolved]
  - Product use in unapproved indication [Unknown]
